FAERS Safety Report 19376624 (Version 2)
Quarter: 2021Q3

REPORT INFORMATION
  Report Type: Spontaneous
  Country: US (occurrence: US)
  Receive Date: 20210604
  Receipt Date: 20210910
  Transmission Date: 20211014
  Serious: Yes (Death, Other)
  Sender: FDA-Public Use
  Company Number: US-AMGEN-USASP2021083268

PATIENT

DRUGS (2)
  1. IRON [Concomitant]
     Active Substance: IRON
     Dosage: UNK
     Route: 042
  2. EPOETIN ALFA [Suspect]
     Active Substance: ERYTHROPOIETIN
     Indication: NEPHROGENIC ANAEMIA
     Dosage: UNK, 3 TIMES/WK
     Route: 051

REACTIONS (97)
  - Cardiac failure congestive [Unknown]
  - Bradycardia [Unknown]
  - Septic shock [Unknown]
  - Small intestinal obstruction [Unknown]
  - Hypoxic-ischaemic encephalopathy [Unknown]
  - Angina unstable [Unknown]
  - Pulseless electrical activity [Unknown]
  - Arteriovenous graft site infection [Unknown]
  - Gastrointestinal haemorrhage [Unknown]
  - Diarrhoea [Unknown]
  - Constipation [Unknown]
  - Hypotension [Unknown]
  - Abdominal pain [Unknown]
  - Oedema peripheral [Unknown]
  - Peripheral swelling [Unknown]
  - Arteriovenous fistula site haemorrhage [Unknown]
  - Dizziness [Unknown]
  - Arthralgia [Unknown]
  - Nausea [Unknown]
  - Vascular graft complication [Unknown]
  - Femur fracture [Unknown]
  - Staphylococcal bacteraemia [Unknown]
  - Encephalopathy [Unknown]
  - Cardiac arrest [Unknown]
  - Arteriovenous fistula site infection [Unknown]
  - Diverticulitis [Unknown]
  - Hypertensive crisis [Unknown]
  - Myocardial infarction [Unknown]
  - Fluid overload [Unknown]
  - Hypoglycaemia [Unknown]
  - Gastroenteritis [Unknown]
  - Muscle spasms [Unknown]
  - Atrial fibrillation [Unknown]
  - Respiratory failure [Unknown]
  - Pulmonary oedema [Unknown]
  - Device related infection [Unknown]
  - Staphylococcal sepsis [Unknown]
  - Acute pulmonary oedema [Unknown]
  - Gangrene [Unknown]
  - Deep vein thrombosis [Unknown]
  - Viral upper respiratory tract infection [Unknown]
  - Coronary artery disease [Unknown]
  - Contusion [Unknown]
  - Cough [Unknown]
  - Cellulitis [Unknown]
  - Bacteraemia [Unknown]
  - Blood loss anaemia [Unknown]
  - Upper gastrointestinal haemorrhage [Unknown]
  - Seizure [Unknown]
  - Non-cardiac chest pain [Unknown]
  - Limb injury [Unknown]
  - Pain [Unknown]
  - Pleural effusion [Unknown]
  - Face oedema [Unknown]
  - Hyperkalaemia [Unknown]
  - Pneumonia [Unknown]
  - Gastric ulcer [Unknown]
  - Aortic stenosis [Unknown]
  - Osteomyelitis [Unknown]
  - Anaemia [Unknown]
  - Tachycardia [Unknown]
  - Influenza [Unknown]
  - Insomnia [Unknown]
  - Clostridium difficile colitis [Unknown]
  - Cerebrovascular accident [Unknown]
  - Fall [Unknown]
  - Urinary tract infection [Unknown]
  - Asthenia [Unknown]
  - Bronchitis [Unknown]
  - Anxiety [Unknown]
  - Asthma [Unknown]
  - Chronic obstructive pulmonary disease [Unknown]
  - Pyrexia [Unknown]
  - Sepsis [Unknown]
  - Syncope [Unknown]
  - Angina pectoris [Unknown]
  - Metabolic encephalopathy [Unknown]
  - Pneumonia aspiration [Unknown]
  - Diabetic ketoacidosis [Unknown]
  - Arteriovenous fistula site complication [Unknown]
  - Dyspnoea [Unknown]
  - Musculoskeletal pain [Unknown]
  - Musculoskeletal chest pain [Unknown]
  - Upper respiratory tract infection [Unknown]
  - Pruritus [Unknown]
  - Vomiting [Unknown]
  - Death [Fatal]
  - Arteriovenous graft thrombosis [Unknown]
  - Arteriovenous fistula thrombosis [Unknown]
  - Pain in extremity [Unknown]
  - Back pain [Unknown]
  - Iron deficiency [Unknown]
  - Mental status changes [Unknown]
  - Hypervolaemia [Unknown]
  - Diabetic foot [Unknown]
  - Headache [Unknown]
  - Hypertension [Unknown]
